FAERS Safety Report 13644170 (Version 6)
Quarter: 2017Q3

REPORT INFORMATION
  Report Type: Report from Study
  Country: US (occurrence: US)
  Receive Date: 20170612
  Receipt Date: 20170911
  Transmission Date: 20171127
  Serious: Yes (Hospitalization)
  Sender: FDA-Public Use
  Company Number: US-ACTELION-A-NJ2017-154952

PATIENT
  Age: 30 Year
  Sex: Female
  Weight: 52.15 kg

DRUGS (2)
  1. REMODULIN [Concomitant]
     Active Substance: TREPROSTINIL
  2. VELETRI [Suspect]
     Active Substance: EPOPROSTENOL
     Indication: PULMONARY ARTERIAL HYPERTENSION
     Dosage: 12 NG/KG, PER MIN
     Route: 042
     Dates: start: 2017

REACTIONS (23)
  - Pain in jaw [Unknown]
  - Catheter site erythema [Unknown]
  - Flushing [Unknown]
  - Fatigue [Recovering/Resolving]
  - Catheter site inflammation [Unknown]
  - Gastrooesophageal reflux disease [Unknown]
  - Back pain [Unknown]
  - Application site erythema [Not Recovered/Not Resolved]
  - Application site pruritus [Not Recovered/Not Resolved]
  - Headache [Recovered/Resolved]
  - Diarrhoea [Unknown]
  - Rash erythematous [Unknown]
  - Application site irritation [Not Recovered/Not Resolved]
  - Myalgia [Unknown]
  - Photophobia [Unknown]
  - Suture related complication [Unknown]
  - Catheter site injury [Unknown]
  - Neck pain [Unknown]
  - Catheter site rash [Unknown]
  - Catheter site vesicles [Unknown]
  - Nausea [Unknown]
  - Catheter site pain [Unknown]
  - Vision blurred [Unknown]
